FAERS Safety Report 6335550-4 (Version None)
Quarter: 2009Q3

REPORT INFORMATION
  Report Type: 
  Country: None (occurrence: None)
  Receive Date: 20090831
  Receipt Date: 20090821
  Transmission Date: 20100115
  Serious: Yes (Other)
  Sender: FDA-Public Use
  Company Number: BR-ABBOTT-09P-020-0592874-00

PATIENT
  Sex: Female
  Weight: 70 kg

DRUGS (4)
  1. DEPAKENE [Suspect]
     Indication: EPILEPSY
     Route: 048
  2. DEPAKENE [Suspect]
     Indication: CONVULSION
  3. PHENOBARBITAL [Concomitant]
     Indication: EPILEPSY
     Route: 048
  4. CARBAMAZEPINE [Concomitant]
     Indication: EPILEPSY
     Route: 048

REACTIONS (5)
  - ANDROGENS ABNORMAL [None]
  - CONVULSION [None]
  - FATIGUE [None]
  - MUSCULAR WEAKNESS [None]
  - OVARIAN INFECTION [None]
